FAERS Safety Report 12758568 (Version 1)
Quarter: 2016Q3

REPORT INFORMATION
  Report Type: Other
  Country: CA (occurrence: CA)
  Receive Date: 20160919
  Receipt Date: 20160919
  Transmission Date: 20161109
  Serious: Yes (Hospitalization)
  Sender: FDA-Public Use
  Company Number: CA-APOTEX-2016AP011409

PATIENT
  Age: 63 Year
  Sex: Female

DRUGS (1)
  1. APO-IRBESARTAN [Suspect]
     Active Substance: IRBESARTAN
     Indication: HYPERTENSION
     Dosage: 300 MG, QD
     Route: 065

REACTIONS (4)
  - Fall [Unknown]
  - Joint injury [Unknown]
  - Asthma [Unknown]
  - Disturbance in attention [Unknown]
